FAERS Safety Report 15260930 (Version 2)
Quarter: 2018Q3

REPORT INFORMATION
  Report Type: Report from Study
  Country: HT (occurrence: HT)
  Receive Date: 20180809
  Receipt Date: 20180914
  Transmission Date: 20181010
  Serious: Yes (Hospitalization, Other)
  Sender: FDA-Public Use
  Company Number: HT-SA-2018SA180129

PATIENT
  Age: 1 Day
  Sex: Male
  Weight: 3.82 kg

DRUGS (5)
  1. RIFAPENTINE [Suspect]
     Active Substance: RIFAPENTINE
     Dosage: 900 MG, QW
     Route: 064
     Dates: start: 20180402, end: 20180618
  2. DEXTROSE. [Concomitant]
     Active Substance: DEXTROSE
     Indication: HYPOGLYCAEMIA
     Dosage: 8 MG/KG, QMN
     Dates: start: 20180702, end: 20180713
  3. ISONIAZIDE [Suspect]
     Active Substance: ISONIAZID
     Dosage: 900 MG, QW
     Route: 064
     Dates: start: 20180402, end: 20180618
  4. TETANUS IMMUNOGLOBULIN [Concomitant]
     Active Substance: HUMAN CLOSTRIDIUM TETANI TOXOID IMMUNE GLOBULIN
     Dosage: 750 IU
     Route: 030
  5. VITAMIN K [Concomitant]
     Active Substance: PHYTONADIONE
     Dosage: 1 MG
     Route: 030

REACTIONS (3)
  - Anaemia [Unknown]
  - Sepsis neonatal [Recovered/Resolved]
  - Generalised tonic-clonic seizure [Recovered/Resolved]

NARRATIVE: CASE EVENT DATE: 20180628
